FAERS Safety Report 9336026 (Version 1)
Quarter: 2013Q2

REPORT INFORMATION
  Report Type: Report from Study
  Country: AU (occurrence: AU)
  Receive Date: 20130607
  Receipt Date: 20130607
  Transmission Date: 20140414
  Serious: Yes (Other)
  Sender: FDA-Public Use
  Company Number: AU-ROCHE-1232031

PATIENT
  Age: 88 Year
  Sex: Female

DRUGS (1)
  1. RANIBIZUMAB [Suspect]
     Indication: AGE-RELATED MACULAR DEGENERATION
     Route: 050
     Dates: start: 20110826

REACTIONS (4)
  - Scotoma [Not Recovered/Not Resolved]
  - Eye pain [Unknown]
  - Injection site pain [Recovered/Resolved]
  - Foreign body sensation in eyes [Unknown]
